FAERS Safety Report 6216178-3 (Version None)
Quarter: 2009Q2

REPORT INFORMATION
  Report Type: 
  Country: None (occurrence: None)
  Receive Date: 20090605
  Receipt Date: 20090528
  Transmission Date: 20091009
  Serious: Yes (Hospitalization)
  Sender: FDA-Public Use
  Company Number: DE-NOVOPROD-280610

PATIENT
  Sex: Male
  Weight: 15.8 kg

DRUGS (1)
  1. NORDITROPIN [Suspect]
     Indication: GROWTH HORMONE DEFICIENCY
     Dosage: .5 MG, QD
     Route: 058
     Dates: start: 20060125, end: 20081016

REACTIONS (1)
  - JOINT STIFFNESS [None]
